FAERS Safety Report 7824475-0 (Version None)
Quarter: 2011Q4

REPORT INFORMATION
  Report Type: 
  Country: None (occurrence: None)
  Receive Date: 20111018
  Receipt Date: 20111018
  Transmission Date: 20120403
  Serious: Yes (Hospitalization)
  Sender: FDA-Public Use
  Company Number: None

PATIENT
  Age: 87 Year
  Sex: Female
  Weight: 84.8 kg

DRUGS (1)
  1. PRADAXA [Suspect]
     Indication: ATRIAL FIBRILLATION
     Dosage: 150 MG BID PO
     Route: 048
     Dates: start: 20110920, end: 20111011

REACTIONS (5)
  - GLOSSODYNIA [None]
  - MUCOSAL NECROSIS [None]
  - LIP SWELLING [None]
  - DYSPHAGIA [None]
  - SWOLLEN TONGUE [None]
